FAERS Safety Report 9655022 (Version 1)
Quarter: 2013Q4

REPORT INFORMATION
  Report Type: Spontaneous
  Country: US (occurrence: US)
  Receive Date: 20131029
  Receipt Date: 20131029
  Transmission Date: 20140711
  Serious: Yes (Other)
  Sender: FDA-Public Use
  Company Number: US-NAPPMUNDI-USA-2012-0092562

PATIENT
  Age: 25 Year
  Sex: Female

DRUGS (4)
  1. OXYCONTIN (NDA 22-272) [Suspect]
     Indication: DRUG ABUSE
  2. VICODIN [Suspect]
     Indication: DRUG ABUSE
  3. PERCOCET /00867901/ [Suspect]
     Indication: DRUG ABUSE
  4. OPIOIDS [Suspect]
     Indication: DRUG ABUSE

REACTIONS (1)
  - Drug abuse [Unknown]
